FAERS Safety Report 6993208-2 (Version None)
Quarter: 2010Q3

REPORT INFORMATION
  Report Type: 
  Country: None (occurrence: None)
  Receive Date: 20100917
  Receipt Date: 20100527
  Transmission Date: 20110219
  Serious: No
  Sender: FDA-Public Use
  Company Number: US-ASTRAZENECA-2010SE27477

PATIENT
  Sex: Female
  Weight: 70.3 kg

DRUGS (7)
  1. SEROQUEL [Suspect]
     Route: 048
     Dates: start: 20050701
  2. WELLBUTRIN [Concomitant]
     Dates: start: 20050701
  3. PROZAC [Concomitant]
     Dates: start: 20050701
  4. KLONOPIN [Concomitant]
     Dates: start: 20050701
  5. DETROL [Concomitant]
     Dates: start: 20050701
  6. GLIPIZIDE [Concomitant]
     Dates: start: 20050701
  7. DEPO-PROVERA [Concomitant]
     Dates: start: 20030101, end: 20050401

REACTIONS (2)
  - BREAST PAIN [None]
  - OVERWEIGHT [None]
